FAERS Safety Report 4986979-8 (Version None)
Quarter: 2006Q2

REPORT INFORMATION
  Report Type: 
  Country: None (occurrence: None)
  Receive Date: 20060427
  Receipt Date: 20060427
  Transmission Date: 20061013
  Serious: No
  Sender: FDA-Public Use
  Company Number: None

PATIENT
  Age: 49 Year
  Sex: Female

DRUGS (1)
  1. ISOVUE-370 [Suspect]
     Indication: COMPUTERISED TOMOGRAM
     Dosage: 100 ML  X 1 IV
     Route: 042
     Dates: start: 20060418

REACTIONS (3)
  - BRONCHOSPASM [None]
  - CHEST DISCOMFORT [None]
  - DYSPNOEA [None]
